FAERS Safety Report 14284305 (Version 1)
Quarter: 2017Q4

REPORT INFORMATION
  Report Type: Spontaneous
  Country: IT (occurrence: IT)
  Receive Date: 20171214
  Receipt Date: 20171214
  Transmission Date: 20180321
  Serious: Yes (Other)
  Sender: FDA-Public Use
  Company Number: IT-ACCORD-062182

PATIENT
  Age: 40 Year
  Sex: Male

DRUGS (3)
  1. OXALIPLATIN. [Suspect]
     Active Substance: OXALIPLATIN
     Indication: T-CELL LYMPHOMA
  2. GEMCITABINE/GEMCITABINE HYDROCHLORIDE [Suspect]
     Active Substance: GEMCITABINE\GEMCITABINE HYDROCHLORIDE
     Indication: T-CELL LYMPHOMA
  3. OXALIPLATIN. [Suspect]
     Active Substance: OXALIPLATIN
     Indication: T-CELL LYMPHOMA

REACTIONS (2)
  - Pneumonia [Unknown]
  - Off label use [Unknown]
